FAERS Safety Report 9732958 (Version 2)
Quarter: 2013Q4

REPORT INFORMATION
  Report Type: Spontaneous
  Country: US (occurrence: US)
  Receive Date: 20131205
  Receipt Date: 20131205
  Transmission Date: 20140711
  Serious: Yes (Death, Life-Threatening)
  Sender: FDA-Public Use
  Company Number: US-MALLINCKRODT-T201304922

PATIENT
  Age: 54 Year
  Sex: Female

DRUGS (3)
  1. METHADONE [Suspect]
     Indication: PAIN
     Dosage: 10 MG, BID
     Route: 048
  2. HUMALOG [Concomitant]
     Indication: DIABETES MELLITUS
     Dosage: UNK
  3. APIDRA [Concomitant]
     Indication: DIABETES MELLITUS
     Dosage: UNK

REACTIONS (2)
  - Pneumococcal sepsis [Fatal]
  - Cardio-respiratory distress [Unknown]
